FAERS Safety Report 6397782-9 (Version None)
Quarter: 2009Q4

REPORT INFORMATION
  Report Type: 
  Country: None (occurrence: None)
  Receive Date: 20091007
  Receipt Date: 20090924
  Transmission Date: 20100525
  Serious: Yes (Hospitalization)
  Sender: FDA-Public Use
  Company Number: 8052645

PATIENT
  Age: 53 Year
  Sex: Female

DRUGS (6)
  1. CIMZIA [Suspect]
     Indication: CROHN'S DISEASE
     Dosage: 400 MG /M SC
     Route: 058
     Dates: start: 20080101, end: 20090827
  2. PREDNISONE [Concomitant]
  3. PRILOSEC [Concomitant]
  4. KLONOPIN [Concomitant]
  5. PHENERGAN HCL [Concomitant]
  6. DURAGESIC-100 [Concomitant]

REACTIONS (3)
  - HYPOPHAGIA [None]
  - PNEUMONIA [None]
  - WEIGHT DECREASED [None]
